FAERS Safety Report 6172468-4 (Version None)
Quarter: 2009Q2

REPORT INFORMATION
  Report Type: 
  Country: None (occurrence: None)
  Receive Date: 20090429
  Receipt Date: 20090421
  Transmission Date: 20091009
  Serious: Yes (Life-Threatening, Other)
  Sender: FDA-Public Use
  Company Number: ES-GENENTECH-281923

PATIENT
  Age: 43 Year
  Sex: Female

DRUGS (1)
  1. TNKASE [Suspect]
     Indication: MYOCARDIAL INFARCTION
     Dosage: UNK

REACTIONS (3)
  - CARDIOGENIC SHOCK [None]
  - DRUG INEFFECTIVE [None]
  - HEART TRANSPLANT [None]
